FAERS Safety Report 10259638 (Version 1)
Quarter: 2014Q2

REPORT INFORMATION
  Report Type: Spontaneous
  Country: US (occurrence: US)
  Receive Date: 20140625
  Receipt Date: 20140625
  Transmission Date: 20141212
  Serious: No
  Sender: FDA-Public Use
  Company Number: US-ASTRAZENECA-2014SE44537

PATIENT
  Age: 79 Year
  Sex: Female
  Weight: 46.7 kg

DRUGS (8)
  1. ARIMIDEX [Suspect]
     Indication: BREAST CANCER IN SITU
     Route: 048
     Dates: start: 20140610, end: 20140611
  2. SYNTHROID [Concomitant]
     Indication: THYROID DISORDER
     Route: 048
     Dates: start: 201401
  3. HCTZ [Concomitant]
     Indication: HYPERTENSION
     Route: 048
  4. AZOR [Concomitant]
     Indication: HYPERTENSION
     Dosage: 5/20MG DAILY
     Route: 048
  5. VITAMINS [Concomitant]
     Indication: VITAMIN SUPPLEMENTATION
     Route: 048
  6. MAGNESIUM [Concomitant]
     Indication: MINERAL SUPPLEMENTATION
     Route: 048
  7. GARLIC [Concomitant]
     Indication: NUTRITIONAL SUPPLEMENTATION
     Route: 048
  8. VITAMIN E [Concomitant]
     Indication: VITAMIN SUPPLEMENTATION
     Route: 048

REACTIONS (5)
  - Cardiac disorder [Unknown]
  - Heart rate increased [Unknown]
  - Pain in extremity [Unknown]
  - Palpitations [Unknown]
  - Head discomfort [Not Recovered/Not Resolved]
